FAERS Safety Report 5963247-9 (Version None)
Quarter: 2008Q4

REPORT INFORMATION
  Report Type: 
  Country: None (occurrence: None)
  Receive Date: 20081120
  Receipt Date: 20081120
  Transmission Date: 20090506
  Serious: No
  Sender: FDA-Public Use
  Company Number: None

PATIENT
  Age: 65 Year
  Sex: Male

DRUGS (1)
  1. DASATINIB [Suspect]
     Dosage: 70 MG EVERY DAY PO
     Route: 048
     Dates: start: 20070206, end: 20070517

REACTIONS (4)
  - COUGH [None]
  - FATIGUE [None]
  - PLEURAL EFFUSION [None]
  - WHEEZING [None]
